FAERS Safety Report 9868854 (Version 1)
Quarter: 2014Q1

REPORT INFORMATION
  Report Type: Report from Study
  Country: JP (occurrence: JP)
  Receive Date: 20140204
  Receipt Date: 20140204
  Transmission Date: 20141002
  Serious: Yes (Death)
  Sender: FDA-Public Use
  Company Number: JP-GILEAD-2014-0093534

PATIENT
  Age: 67 Year
  Sex: Female
  Weight: 42 kg

DRUGS (16)
  1. AMBRISENTAN [Suspect]
     Indication: PULMONARY ARTERIAL HYPERTENSION
     Dosage: 5 MG, QD
     Route: 048
     Dates: start: 20110616
  2. AMBRISENTAN [Suspect]
     Dosage: 7.5 UNK, UNK
     Route: 048
     Dates: start: 20110722
  3. AMBRISENTAN [Suspect]
     Dosage: 10 UNK, UNK
     Route: 048
     Dates: start: 20110802, end: 20121016
  4. WARFARIN [Suspect]
     Indication: ATRIAL THROMBOSIS
     Route: 048
     Dates: start: 20110615, end: 20111023
  5. REVATIO [Concomitant]
     Indication: PULMONARY ARTERIAL HYPERTENSION
     Route: 048
     Dates: start: 20110819, end: 20121016
  6. TAKEPRON [Concomitant]
     Indication: PROPHYLAXIS AGAINST GASTROINTESTINAL ULCER
     Route: 048
     Dates: start: 20110615, end: 20121016
  7. GASCON [Concomitant]
     Indication: DYSCHEZIA
     Route: 048
     Dates: end: 20121016
  8. FUROSEMIDE [Concomitant]
     Indication: ASCITES
     Route: 048
     Dates: start: 20120921, end: 20121016
  9. ALDACTONE A [Concomitant]
     Indication: ASCITES
     Route: 048
     Dates: start: 20120921, end: 20121016
  10. ABSORBINE JR [Concomitant]
     Indication: HEPATIC CIRRHOSIS
     Route: 048
     Dates: start: 20120921, end: 20121016
  11. ALBUMIN TANNATE [Concomitant]
     Indication: HEPATIC CIRRHOSIS
     Route: 048
     Dates: start: 20120921, end: 20121016
  12. FUROSEMIDE [Concomitant]
     Indication: OEDEMA
     Dosage: UNK
     Route: 042
     Dates: start: 20121012, end: 20121014
  13. HUMAN SERUM ALBUMIN [Concomitant]
     Indication: HEPATIC FAILURE
     Route: 042
     Dates: start: 20121013, end: 20121015
  14. ZOSYN [Concomitant]
     Indication: INFECTION
     Dates: start: 20121015, end: 20121016
  15. KAYTWO [Concomitant]
     Indication: HEPATIC FAILURE
     Route: 042
     Dates: start: 20121015, end: 20121016
  16. ACYCLOVIR                          /00587301/ [Concomitant]
     Indication: INFECTION
     Route: 042
     Dates: start: 20121015, end: 20121016

REACTIONS (3)
  - Anaemia [Fatal]
  - Liver disorder [Unknown]
  - Fluid retention [Unknown]
